FAERS Safety Report 4640135-1 (Version None)
Quarter: 2005Q2

REPORT INFORMATION
  Report Type: 
  Country: None (occurrence: None)
  Receive Date: 20050415
  Receipt Date: 20050415
  Transmission Date: 20051028
  Serious: Yes (Life-Threatening)
  Sender: FDA-Public Use
  Company Number: None

PATIENT
  Age: 53 Year
  Sex: Female
  Weight: 77.1115 kg

DRUGS (4)
  1. URISTAT 95 MG MCNEIL-PPC [Suspect]
     Indication: URINARY TRACT INFECTION
     Dosage: 2 TABLETS QID ORAL
     Route: 048
     Dates: start: 20021001, end: 20021003
  2. URISTAT 95 MG MCNEIL-PPC [Suspect]
     Indication: URINARY TRACT INFECTION
     Dosage: 2 TABLETS QID ORAL
     Route: 048
     Dates: start: 20050315, end: 20050317
  3. KEFLEX [Concomitant]
  4. AMOXICILLIN [Concomitant]

REACTIONS (3)
  - ASTHENIA [None]
  - MYALGIA [None]
  - PYREXIA [None]
